FAERS Safety Report 6548793-1 (Version None)
Quarter: 2010Q1

REPORT INFORMATION
  Report Type: 
  Country: None (occurrence: None)
  Receive Date: 20100124
  Receipt Date: 20091119
  Transmission Date: 20100710
  Serious: No
  Sender: FDA-Public Use
  Company Number: US-ALLERGAN-0916057US

PATIENT
  Sex: Female

DRUGS (1)
  1. RESTASIS [Suspect]
     Indication: DRUG USE FOR UNKNOWN INDICATION
     Dosage: 1 GTT, BID
     Route: 047
     Dates: start: 20090501, end: 20090801

REACTIONS (4)
  - RASH ERYTHEMATOUS [None]
  - RASH GENERALISED [None]
  - SENSATION OF FOREIGN BODY [None]
  - SKIN BURNING SENSATION [None]
